FAERS Safety Report 5429151-X (Version None)
Quarter: 2007Q3

REPORT INFORMATION
  Report Type: 
  Country: None (occurrence: None)
  Receive Date: 20070827
  Receipt Date: 20070701
  Transmission Date: 20080115
  Serious: Yes (Life-Threatening, Hospitalization)
  Sender: FDA-Public Use
  Company Number: 2007EN000207

PATIENT
  Age: 52 Year
  Sex: Male
  Weight: 74.8435 kg

DRUGS (4)
  1. OPANA ER [Suspect]
     Indication: NEUROPATHY
     Dosage: 20 MG; BID
     Dates: start: 20070101, end: 20070501
  2. OPANA ER [Suspect]
     Indication: NEUROPATHY
     Dosage: 20 MG; BID
     Dates: start: 20070101
  3. LYRICA [Concomitant]
  4. ANTIHYPERTENSIVES [Concomitant]

REACTIONS (1)
  - INTESTINAL OBSTRUCTION [None]
